FAERS Safety Report 24743943 (Version 1)
Quarter: 2024Q4

REPORT INFORMATION
  Report Type: Spontaneous
  Country: FR (occurrence: FR)
  Receive Date: 20241217
  Receipt Date: 20241217
  Transmission Date: 20250115
  Serious: Yes (Hospitalization, Other)
  Sender: RECKITT BENCKISER
  Company Number: None

PATIENT

DRUGS (1)
  1. BUPRENORPHINE [Suspect]
     Active Substance: BUPRENORPHINE
     Indication: Product used for unknown indication
     Dosage: BETWEEN 4 AND 6 MG/DAY ON HEROIN-FREE DAYS
     Route: 065

REACTIONS (5)
  - Gun shot wound [Recovering/Resolving]
  - Radius fracture [Recovering/Resolving]
  - Tendon injury [Recovering/Resolving]
  - Peripheral nerve injury [Recovering/Resolving]
  - Drug abuse [Not Recovered/Not Resolved]

NARRATIVE: CASE EVENT DATE: 20090101
